FAERS Safety Report 23240367 (Version 1)
Quarter: 2023Q4

REPORT INFORMATION
  Report Type: Spontaneous
  Country: US (occurrence: None)
  Receive Date: 20231129
  Receipt Date: 20231129
  Transmission Date: 20240110
  Serious: Yes (Death, Other)
  Sender: FDA-Public Use
  Company Number: US-Unichem Pharmaceuticals (USA) Inc-UCM202311-001437

PATIENT
  Age: 39 Year
  Sex: Female

DRUGS (2)
  1. LAMOTRIGINE [Suspect]
     Active Substance: LAMOTRIGINE
     Indication: Epilepsy
  2. LAMOTRIGINE [Suspect]
     Active Substance: LAMOTRIGINE

REACTIONS (11)
  - Hyponatraemia [Fatal]
  - Cardiac arrest [Fatal]
  - Ventricular fibrillation [Fatal]
  - Thyroiditis [Fatal]
  - Pulmonary oedema [Fatal]
  - Electrolyte imbalance [Fatal]
  - Hypoalbuminaemia [Fatal]
  - Mucosal haemorrhage [Fatal]
  - Hepatic necrosis [Fatal]
  - Eosinophilic myocarditis [Fatal]
  - Drug reaction with eosinophilia and systemic symptoms [Fatal]
